FAERS Safety Report 25394624 (Version 2)
Quarter: 2025Q2

REPORT INFORMATION
  Report Type: Spontaneous
  Country: US (occurrence: US)
  Receive Date: 20250604
  Receipt Date: 20250616
  Transmission Date: 20250717
  Serious: Yes (Hospitalization, Other)
  Sender: DR REDDYS
  Company Number: US-DRL-USA-USA/2025/06/008049

PATIENT
  Age: 34 Year
  Sex: Male

DRUGS (15)
  1. LEVETIRACETAM [Suspect]
     Active Substance: LEVETIRACETAM
     Indication: Febrile infection-related epilepsy syndrome
  2. CYCLOPHOSPHAMIDE [Suspect]
     Active Substance: CYCLOPHOSPHAMIDE
     Indication: Febrile infection-related epilepsy syndrome
  3. LACOSAMIDE [Suspect]
     Active Substance: LACOSAMIDE
     Indication: Febrile infection-related epilepsy syndrome
  4. PROPOFOL [Suspect]
     Active Substance: PROPOFOL
     Indication: Febrile infection-related epilepsy syndrome
  5. VALPROIC ACID [Suspect]
     Active Substance: VALPROIC ACID
     Indication: Febrile infection-related epilepsy syndrome
  6. IV immune globulin [immunoglobulin] [Concomitant]
     Indication: Febrile infection-related epilepsy syndrome
  7. MYCOPHENOLATE MOFETIL [Concomitant]
     Active Substance: MYCOPHENOLATE MOFETIL
     Indication: Febrile infection-related epilepsy syndrome
  8. RITUXIMAB [Concomitant]
     Active Substance: RITUXIMAB
     Indication: Febrile infection-related epilepsy syndrome
  9. METHYLPREDNISOLONE [Concomitant]
     Active Substance: METHYLPREDNISOLONE
     Indication: Febrile infection-related epilepsy syndrome
  10. CLOBAZAM [Concomitant]
     Active Substance: CLOBAZAM
     Indication: Febrile infection-related epilepsy syndrome
  11. FOSPHENYTOIN [Concomitant]
     Active Substance: FOSPHENYTOIN
     Indication: Febrile infection-related epilepsy syndrome
  12. KETAMINE [Concomitant]
     Active Substance: KETAMINE
     Indication: Febrile infection-related epilepsy syndrome
  13. PENTOBARBITAL [Concomitant]
     Active Substance: PENTOBARBITAL
     Indication: Febrile infection-related epilepsy syndrome
  14. PERAMPANEL [Concomitant]
     Active Substance: PERAMPANEL
     Indication: Febrile infection-related epilepsy syndrome
  15. PHENOBARBITAL [Concomitant]
     Active Substance: PHENOBARBITAL
     Indication: Febrile infection-related epilepsy syndrome

REACTIONS (2)
  - Drug ineffective [Unknown]
  - Product use in unapproved indication [Unknown]
